FAERS Safety Report 12992826 (Version 1)
Quarter: 2016Q4

REPORT INFORMATION
  Report Type: Spontaneous
  Country: DE (occurrence: DE)
  Receive Date: 20161202
  Receipt Date: 20161202
  Transmission Date: 20170207
  Serious: Yes (Hospitalization)
  Sender: FDA-Public Use
  Company Number: DE-TEVA-714600GER

PATIENT
  Age: 68 Year
  Sex: Female

DRUGS (12)
  1. LEPONEX [Suspect]
     Active Substance: CLOZAPINE
     Route: 048
  2. DIPIPERON [Suspect]
     Active Substance: PIPAMPERONE
     Route: 048
  3. MICTONORM [Suspect]
     Active Substance: PROPIVERINE HYDROCHLORIDE
     Route: 048
  4. OMEPRAZOL [Concomitant]
     Active Substance: OMEPRAZOLE
     Indication: GASTROINTESTINAL DISORDER
     Route: 048
  5. ARCOXIA [Concomitant]
     Active Substance: ETORICOXIB
     Indication: PAIN
     Route: 048
  6. ZOPICLON 7,5 [Suspect]
     Active Substance: ZOPICLONE
     Route: 048
  7. SIMVABETA [Concomitant]
     Active Substance: SIMVASTATIN
     Indication: LIPID METABOLISM DISORDER
     Route: 048
  8. STANGYL [Suspect]
     Active Substance: TRIMIPRAMINE MALEATE
     Route: 048
     Dates: end: 20160411
  9. CONCOR [Suspect]
     Active Substance: BISOPROLOL FUMARATE
     Route: 048
  10. TOLTERODINE [Suspect]
     Active Substance: TOLTERODINE
     Route: 048
  11. ERGENYL [Suspect]
     Active Substance: VALPROIC ACID
     Route: 048
  12. L-THYROXIN [Concomitant]
     Active Substance: LEVOTHYROXINE SODIUM
     Indication: THYROID DISORDER
     Route: 048

REACTIONS (1)
  - Fall [Unknown]

NARRATIVE: CASE EVENT DATE: 20160411
